FAERS Safety Report 8737403 (Version 2)
Quarter: 2012Q4

REPORT INFORMATION
  Report Type: 
  Country: US (occurrence: US)
  Receive Date: 20120822
  Receipt Date: 20121003
  Transmission Date: 20130627
  Serious: No
  Sender: FDA-Public Use
  Company Number: US-PFIZER INC-2012205392

PATIENT
  Age: 56 Year
  Sex: Female
  Weight: 55.33 kg

DRUGS (1)
  1. CHANTIX [Suspect]
     Indication: SMOKING CESSATION THERAPY
     Dosage: 0.5 mg, 1x/day
     Route: 048
     Dates: start: 2009, end: 2009

REACTIONS (2)
  - Oral infection [Not Recovered/Not Resolved]
  - Tobacco user [Unknown]
